FAERS Safety Report 4990799-8 (Version None)
Quarter: 2006Q2

REPORT INFORMATION
  Report Type: 
  Country: None (occurrence: None)
  Receive Date: 20060428
  Receipt Date: 20060416
  Transmission Date: 20061013
  Serious: Yes (Other)
  Sender: FDA-Public Use
  Company Number: 2006RL000137

PATIENT
  Age: 5 Year
  Sex: Female

DRUGS (3)
  1. PROPRANOLOL HYDROCHLORIDE [Suspect]
     Indication: EYE PAIN
     Dates: start: 20040201, end: 20040501
  2. PROPRANOLOL HYDROCHLORIDE [Suspect]
     Indication: HEADACHE
     Dates: start: 20040201, end: 20040501
  3. PROPRANOLOL HYDROCHLORIDE [Suspect]
     Indication: PROPHYLAXIS
     Dates: start: 20040201, end: 20040501

REACTIONS (6)
  - BENIGN INTRACRANIAL HYPERTENSION [None]
  - DIPLOPIA [None]
  - EYE PAIN [None]
  - HEADACHE [None]
  - OFF LABEL USE [None]
  - PAPILLOEDEMA [None]
